FAERS Safety Report 4349080-2 (Version None)
Quarter: 2004Q2

REPORT INFORMATION
  Report Type: 
  Country: None (occurrence: None)
  Receive Date: 20040427
  Receipt Date: 20040427
  Transmission Date: 20050107
  Serious: Yes (Other)
  Sender: FDA-Public Use
  Company Number: None

PATIENT
  Age: 40 Year
  Sex: Male
  Weight: 90.7194 kg

DRUGS (2)
  1. VANCOMYCIN [Suspect]
     Indication: WOUND INFECTION
     Dosage: 1250 MG IV (EVERY 18 H -STARTED 3/17 PT ADM MED)
     Route: 042
     Dates: start: 20040317
  2. FLO-GARD PUMP [Concomitant]

REACTIONS (1)
  - PLATELET COUNT DECREASED [None]
